FAERS Safety Report 20204264 (Version 5)
Quarter: 2024Q1

REPORT INFORMATION
  Report Type: Spontaneous
  Country: PT (occurrence: PT)
  Receive Date: 20211220
  Receipt Date: 20240315
  Transmission Date: 20240410
  Serious: Yes (Hospitalization)
  Sender: FDA-Public Use
  Company Number: PT-AMGEN-PRTSP2021197499

PATIENT
  Age: 43 Year
  Sex: Female
  Weight: 89 kg

DRUGS (15)
  1. XGEVA [Suspect]
     Active Substance: DENOSUMAB
     Indication: HER2 positive breast cancer
     Dosage: 120 MILLIGRAM, Q3MO
     Route: 058
     Dates: start: 20170714
  2. GOSERELIN [Suspect]
     Active Substance: GOSERELIN
     Indication: HER2 positive breast cancer
     Dosage: 10.8 MILLIGRAM (DATE OF LAST ADMINISTARTION: 24-MAR-2021)
     Route: 058
     Dates: start: 20171020
  3. NOLVADEX [Suspect]
     Active Substance: TAMOXIFEN CITRATE
     Indication: HER2 positive breast cancer
     Dosage: 20 MILLIGRAM, Q3WK (DATE OF LAST ADMINISTARTION: NOV-2020)
     Route: 042
     Dates: start: 20171020
  4. TAXOTERE [Suspect]
     Active Substance: DOCETAXEL
     Indication: HER2 positive breast cancer
     Dosage: 75 MILLIGRAM/SQ. METER, Q3WK (DATE OF LAST ADMINISTRATION 29/SEP/2017)
     Route: 042
     Dates: start: 20170616
  5. PERJETA [Suspect]
     Active Substance: PERTUZUMAB
     Indication: HER2 positive breast cancer
     Dosage: 420 MILLIGRAM, Q3WK
     Route: 042
     Dates: start: 20170616, end: 20210506
  6. PERJETA [Suspect]
     Active Substance: PERTUZUMAB
     Dosage: 420 MILLIGRAM, Q3WK
     Route: 042
     Dates: start: 20230322
  7. PERJETA [Suspect]
     Active Substance: PERTUZUMAB
     Dosage: 420 MILLIGRAM, Q3WK (DATE OF LAST ADMINISTARTION: 14-DEC-2023)
     Route: 042
     Dates: start: 20230322
  8. PERJETA [Suspect]
     Active Substance: PERTUZUMAB
     Dosage: 840 MILLIGRAM, Q3WK
     Route: 042
     Dates: start: 20230302, end: 20230302
  9. KADCYLA [Suspect]
     Active Substance: ADO-TRASTUZUMAB EMTANSINE
     Indication: HER2 positive breast cancer
     Dosage: 300 MILLIGRAM, Q3WK
     Route: 042
     Dates: start: 20210706
  10. KADCYLA [Suspect]
     Active Substance: ADO-TRASTUZUMAB EMTANSINE
     Dosage: 153.5 MILLIGRAM, Q3WK (DATE OF LAST ADMINISTRATION: 18/JAN/2022)
     Route: 042
     Dates: start: 20211019
  11. KADCYLA [Suspect]
     Active Substance: ADO-TRASTUZUMAB EMTANSINE
     Dosage: 305 MILLIGRAM, Q3WK
     Route: 042
     Dates: start: 20210706, end: 20210727
  12. KADCYLA [Suspect]
     Active Substance: ADO-TRASTUZUMAB EMTANSINE
     Dosage: 184.3 MILLIGRAM, Q3WK
     Route: 042
     Dates: start: 20210907, end: 20210928
  13. FEMARA [Suspect]
     Active Substance: LETROZOLE
     Indication: HER2 positive breast cancer
     Dosage: 2.5 MILLIGRAM, QD
     Route: 048
     Dates: start: 20201229, end: 20210506
  14. HERCEPTIN [Suspect]
     Active Substance: TRASTUZUMAB
     Indication: HER2 positive breast cancer
     Dosage: 600 MILLIGRAM, Q3WK
     Route: 058
     Dates: start: 20170616, end: 20210506
  15. PEGFILGRASTIM [Concomitant]
     Active Substance: PEGFILGRASTIM
     Dosage: 6 MILLIGRAM, Q3WK
     Route: 065
     Dates: start: 20210907, end: 20230201

REACTIONS (3)
  - Thrombocytopenia [Recovered/Resolved]
  - Hepatotoxicity [Recovered/Resolved]
  - Asthenia [Recovered/Resolved]

NARRATIVE: CASE EVENT DATE: 20210731
